FAERS Safety Report 5248294-7 (Version None)
Quarter: 2007Q1

REPORT INFORMATION
  Report Type: 
  Country: None (occurrence: None)
  Receive Date: 20070227
  Receipt Date: 20061218
  Transmission Date: 20070707
  Serious: No
  Sender: FDA-Public Use
  Company Number: US-BRISTOL-MYERS SQUIBB COMPANY-13616818

PATIENT
  Age: 47 Year
  Sex: Female
  Weight: 91 kg

DRUGS (4)
  1. METFORMIN HCL [Suspect]
     Dates: end: 20060901
  2. BYETTA [Suspect]
     Indication: DIABETES MELLITUS NON-INSULIN-DEPENDENT
     Dosage: 10MCG SC BID 11/2006-PRESENT 5MCG BID 9/2006-10/31/2006
     Route: 058
     Dates: start: 20061101
  3. PREMARIN [Suspect]
     Indication: HOT FLUSH
     Route: 048
     Dates: start: 20061101
  4. ESTROGEN REPLACEMENT THERAPY [Concomitant]
     Dates: end: 20061101

REACTIONS (4)
  - BLOOD GLUCOSE INCREASED [None]
  - NAUSEA [None]
  - STRESS [None]
  - VOMITING [None]
